FAERS Safety Report 8289722-2 (Version None)
Quarter: 2012Q2

REPORT INFORMATION
  Report Type: 
  Country: None (occurrence: None)
  Receive Date: 20120417
  Receipt Date: 20120413
  Transmission Date: 20120825
  Serious: No
  Sender: FDA-Public Use
  Company Number: US-PFIZER INC-2012092787

PATIENT
  Sex: Male
  Weight: 95.238 kg

DRUGS (2)
  1. IBUPROFEN (ADVIL) [Suspect]
     Indication: NASOPHARYNGITIS
     Dosage: UNK
     Route: 048
     Dates: end: 20120401
  2. IBUPROFEN (ADVIL) [Suspect]
     Indication: MUSCLE SPASMS

REACTIONS (3)
  - MALAISE [None]
  - EXPIRED DRUG ADMINISTERED [None]
  - ABDOMINAL DISCOMFORT [None]
